FAERS Safety Report 4762964-6 (Version None)
Quarter: 2005Q3

REPORT INFORMATION
  Report Type: 
  Country: None (occurrence: None)
  Receive Date: 20050826
  Receipt Date: 20041103
  Transmission Date: 20060218
  Serious: Yes (Death, Other)
  Sender: FDA-Public Use
  Company Number: USA-2004-0017504

PATIENT
  Age: 42 Year
  Sex: Male
  Weight: 94.8 kg

DRUGS (3)
  1. OXYCONTIN [Suspect]
     Indication: PAIN
  2. DIPHENHYDRAMINE HCL [Suspect]
  3. CAFFEINE (CAFFEINE) [Suspect]

REACTIONS (3)
  - ACCIDENTAL OVERDOSE [None]
  - DRUG ABUSER [None]
  - MULTIPLE DRUG OVERDOSE [None]
